FAERS Safety Report 13108704 (Version 2)
Quarter: 2017Q1

REPORT INFORMATION
  Report Type: Report from Study
  Country: MX (occurrence: MX)
  Receive Date: 20170112
  Receipt Date: 20170119
  Transmission Date: 20170428
  Serious: Yes (Other)
  Sender: FDA-Public Use
  Company Number: MX-BAYER-2016-240644

PATIENT
  Age: 69 Year
  Sex: Male
  Weight: 50.5 kg

DRUGS (2)
  1. ENALAPRIL [Concomitant]
     Active Substance: ENALAPRIL
     Dosage: 10 MG, QD
  2. NEXAVAR [Suspect]
     Active Substance: SORAFENIB
     Indication: HEPATOCELLULAR CARCINOMA
     Dosage: 400 MG, BID
     Route: 048
     Dates: start: 20160926, end: 20161228

REACTIONS (11)
  - Abdominal pain upper [Not Recovered/Not Resolved]
  - Fall [Not Recovered/Not Resolved]
  - Decreased appetite [Recovering/Resolving]
  - Abasia [Recovered/Resolved]
  - Stress [Not Recovered/Not Resolved]
  - Injury [Not Recovered/Not Resolved]
  - Musculoskeletal disorder [Recovered/Resolved]
  - Fall [Not Recovered/Not Resolved]
  - Asthenia [Recovered/Resolved]
  - Joint stiffness [Unknown]
  - Weight decreased [Not Recovered/Not Resolved]

NARRATIVE: CASE EVENT DATE: 201611
